FAERS Safety Report 13814150 (Version 1)
Quarter: 2017Q3

REPORT INFORMATION
  Report Type: Spontaneous
  Country: US (occurrence: US)
  Receive Date: 20170730
  Receipt Date: 20170730
  Transmission Date: 20171127
  Serious: Yes (Life-Threatening, Hospitalization, Disabling, Other)
  Sender: FDA-Public Use
  Company Number: None

PATIENT
  Age: 34 Year
  Sex: Female
  Weight: 58.5 kg

DRUGS (6)
  1. TUMS [Concomitant]
     Active Substance: CALCIUM CARBONATE
  2. ATIVAN [Suspect]
     Active Substance: LORAZEPAM
     Indication: ANXIETY
     Dosage: ?          QUANTITY:1 TABLET(S);?
     Route: 048
  3. ATIVAN [Suspect]
     Active Substance: LORAZEPAM
     Indication: POST-TRAUMATIC STRESS DISORDER
     Dosage: ?          QUANTITY:1 TABLET(S);?
     Route: 048
  4. MEDICAL CANNABIS [Concomitant]
     Active Substance: CANNABIS SATIVA SUBSP. INDICA TOP
  5. PHENERGAN (GENERIC) [Concomitant]
  6. IBUPROFEN (ADVIL) [Concomitant]

REACTIONS (10)
  - Neuralgia [None]
  - Hallucination, visual [None]
  - Ileus paralytic [None]
  - Panic attack [None]
  - Disturbance in attention [None]
  - Pruritus [None]
  - Seizure [None]
  - Homicidal ideation [None]
  - Drug withdrawal syndrome [None]
  - Hyperacusis [None]

NARRATIVE: CASE EVENT DATE: 20110301
